FAERS Safety Report 17562053 (Version 1)
Quarter: 2020Q1

REPORT INFORMATION
  Report Type: Spontaneous
  Country: US (occurrence: US)
  Receive Date: 20200319
  Receipt Date: 20200319
  Transmission Date: 20200409
  Serious: No
  Sender: FDA-Public Use
  Company Number: US-009507513-2003USA005640

PATIENT
  Sex: Female

DRUGS (12)
  1. CLOBETASOL PROPIONATE. [Concomitant]
     Active Substance: CLOBETASOL PROPIONATE
  2. SERTRALINE HYDROCHLORIDE. [Concomitant]
     Active Substance: SERTRALINE HYDROCHLORIDE
  3. BEXAROTENE. [Suspect]
     Active Substance: BEXAROTENE
     Dosage: 75 MILLIGRAM, QD
     Route: 048
  4. TRIAMCINOLONE [Concomitant]
     Active Substance: TRIAMCINOLONE
  5. FENOFIBRATE. [Concomitant]
     Active Substance: FENOFIBRATE
  6. LEVOTHYROXINE SODIUM. [Concomitant]
     Active Substance: LEVOTHYROXINE SODIUM
  7. PREGABALIN. [Concomitant]
     Active Substance: PREGABALIN
  8. ATORVASTATIN [Concomitant]
     Active Substance: ATORVASTATIN
  9. CHOLECALCIFEROL [Concomitant]
     Active Substance: CHOLECALCIFEROL
  10. INTRON A [Suspect]
     Active Substance: INTERFERON ALFA-2B
     Dosage: 0.5 MILLILITER, Q3W(STRENGTH: 18 MILLION UNITS MU)
     Route: 058
  11. BEXAROTENE. [Suspect]
     Active Substance: BEXAROTENE
     Dosage: 150 MILLIGRAM, QD
     Route: 048
  12. HYDROCHLOROTHIAZIDE. [Concomitant]
     Active Substance: HYDROCHLOROTHIAZIDE

REACTIONS (3)
  - Cough [Unknown]
  - Dry mouth [Unknown]
  - Fatigue [Unknown]
